FAERS Safety Report 18084715 (Version 1)
Quarter: 2020Q3

REPORT INFORMATION
  Report Type: Spontaneous
  Country: US (occurrence: US)
  Receive Date: 20200728
  Receipt Date: 20200728
  Transmission Date: 20201103
  Serious: Yes (Other)
  Sender: FDA-Public Use
  Company Number: None

PATIENT
  Age: 57 Year
  Sex: Female
  Weight: 74.25 kg

DRUGS (1)
  1. ASSURED HAND SANITIZER 8OZ [Suspect]
     Active Substance: ALCOHOL
     Indication: INFECTION PROPHYLAXIS
     Dosage: ?          QUANTITY:1 OUNCE(S);?
     Route: 061
     Dates: start: 20200601, end: 20200728

REACTIONS (2)
  - Blindness transient [None]
  - Eye irritation [None]

NARRATIVE: CASE EVENT DATE: 20200728
